FAERS Safety Report 18294057 (Version 2)
Quarter: 2020Q4

REPORT INFORMATION
  Report Type: Spontaneous
  Country: ES (occurrence: ES)
  Receive Date: 20200922
  Receipt Date: 20201117
  Transmission Date: 20210113
  Serious: Yes (Hospitalization, Other)
  Sender: FDA-Public Use
  Company Number: ES-TEVA-2020-ES-1829591

PATIENT
  Age: 13 Year
  Sex: Male

DRUGS (8)
  1. ADRIAMYCIN [Suspect]
     Active Substance: DOXORUBICIN HYDROCHLORIDE
     Indication: OSTEOSARCOMA
     Dosage: ADMINISTERED 3 CYCLES OF THERAPY PRE-SURGICALLY AND 2 CYCLES AFTER SURGICAL RESECTION.
     Route: 065
  2. TRIMETHOPRIM/SULFAMETHOXAZOLE [Suspect]
     Active Substance: SULFAMETHOXAZOLE\TRIMETHOPRIM
     Indication: OSTEOSARCOMA
  3. VINCRISTINE [Suspect]
     Active Substance: VINCRISTINE
     Indication: OSTEOSARCOMA
     Dosage: ADMINISTERED 3 CYCLES OF THERAPY PRE-SURGICALLY AND 2 CYCLES AFTER SURGICAL RESECTION.
     Route: 065
  4. CYCLOPHOSPHAMIDE. [Suspect]
     Active Substance: CYCLOPHOSPHAMIDE
     Indication: OSTEOSARCOMA
     Dosage: RECEIVED 2 CYCLES AFTER SURGICAL RESECTION.
     Route: 065
  5. CISPLATIN. [Suspect]
     Active Substance: CISPLATIN
     Indication: OSTEOSARCOMA
     Dosage: ADMINISTERED 3 CYCLES OF THERAPY PRE-SURGICALLY AND 2 CYCLES AFTER SURGICAL RESECTION.
     Route: 065
  6. ACTINOMYCIN D [Suspect]
     Active Substance: DACTINOMYCIN
     Indication: OSTEOSARCOMA
     Dosage: RECEIVED 2 CYCLES AFTER SURGICAL RESECTION.
     Route: 065
  7. METHOTREXATE. [Suspect]
     Active Substance: METHOTREXATE
     Indication: OSTEOSARCOMA
     Dosage: RECEIVED 2 CYCLES AFTER SURGICAL RESECTION
     Route: 065
  8. TRIMETHOPRIM/SULFAMETHOXAZOLE [Suspect]
     Active Substance: SULFAMETHOXAZOLE\TRIMETHOPRIM
     Indication: ANTIBIOTIC PROPHYLAXIS
     Route: 065

REACTIONS (6)
  - Toxicity to various agents [Recovering/Resolving]
  - Myelosuppression [Recovered/Resolved]
  - Thrombocytopenia [Recovered/Resolved]
  - Leukopenia [Recovered/Resolved]
  - Epidermal necrosis [Recovered/Resolved]
  - Mouth ulceration [Recovering/Resolving]
